FAERS Safety Report 6174118-X (Version None)
Quarter: 2009Q2

REPORT INFORMATION
  Report Type: 
  Country: None (occurrence: None)
  Receive Date: 20090430
  Receipt Date: 20090421
  Transmission Date: 20091009
  Serious: Yes (Hospitalization)
  Sender: FDA-Public Use
  Company Number: US-PFIZER INC-2008093972

PATIENT
  Sex: Female
  Weight: 109 kg

DRUGS (11)
  1. EXEMESTANE [Suspect]
     Indication: BREAST CANCER
     Dosage: 25 MG, 1X/DAY
     Route: 048
     Dates: start: 20050912
  2. PERCOCET [Concomitant]
  3. ALLOPURINOL [Concomitant]
     Dosage: 300 MG, 1X/DAY
  4. ZOCOR [Concomitant]
     Dosage: 40 MG, 1X/DAY
  5. LEVOTHYROXINE [Concomitant]
     Dosage: 100 UNK, UNK
  6. ADVAIR HFA [Concomitant]
  7. DIOVAN [Concomitant]
     Dosage: 80 MG, 1X/DAY
  8. OMEPRAZOLE [Concomitant]
  9. LANTUS [Concomitant]
  10. NOVOLOG [Concomitant]
  11. ZOFRAN [Concomitant]

REACTIONS (1)
  - DEHYDRATION [None]
